FAERS Safety Report 7909172-5 (Version None)
Quarter: 2011Q4

REPORT INFORMATION
  Report Type: 
  Country: None (occurrence: None)
  Receive Date: 20111111
  Receipt Date: 20110502
  Transmission Date: 20120403
  Serious: No
  Sender: FDA-Public Use
  Company Number: US-GLAXOSMITHKLINE-A0925339A

PATIENT
  Age: 70 Year
  Sex: Female

DRUGS (8)
  1. COREG CR [Suspect]
     Indication: HYPERTENSION
     Dosage: 10MG PER DAY
     Route: 048
     Dates: start: 20110401
  2. ASPIRIN [Concomitant]
  3. HYDROCHLOROTHIAZIDE [Concomitant]
  4. IRON SUPPLEMENT [Concomitant]
  5. CALCIUM SUPPLEMENT [Concomitant]
  6. DIAVAN [Concomitant]
  7. VITAMIN D [Concomitant]
  8. COREG [Suspect]
     Indication: HYPERTENSION
     Route: 048
     Dates: end: 20110401

REACTIONS (3)
  - BLOOD PRESSURE FLUCTUATION [None]
  - TREATMENT NONCOMPLIANCE [None]
  - HYPERHIDROSIS [None]
